FAERS Safety Report 7666024 (Version 4)
Quarter: 2014Q1

REPORT INFORMATION
  Report Type: Spontaneous
  Country: US (occurrence: US)
  Receive Date: 20101112
  Receipt Date: 20140102
  Transmission Date: 20141002
  Serious: Yes (Hospitalization, Other)
  Sender: FDA-Public Use
  Company Number: US-BAYER-201040492NA

PATIENT
  Age: 18 Year
  Sex: Female
  Weight: 61 kg

DRUGS (11)
  1. YASMIN [Suspect]
     Indication: ACNE
     Dosage: UNK UNK, UNK
     Route: 048
     Dates: start: 200306, end: 20091115
  2. YASMIN [Suspect]
     Indication: MENSTRUATION IRREGULAR
  3. YASMIN [Suspect]
     Indication: CONTRACEPTION
  4. DEXAMETHASONE [Concomitant]
     Indication: POLYCYSTIC OVARIES
     Dosage: 25 MG, QD
     Route: 048
  5. MULTIVITAMIN [Concomitant]
     Dosage: UNK UNK, QD
  6. NEXIUM [Concomitant]
     Dosage: 40 MG, QD
     Route: 048
  7. CEPHALEXIN [Concomitant]
     Dosage: 500 MG, UNK
  8. AZITHROMYCIN [Concomitant]
     Dosage: 250 MG, UNK
  9. ALBUTEROL [Concomitant]
     Dosage: UNK UNK, PRN
  10. OMEPRAZOLE [Concomitant]
     Dosage: 20 MG, BID
  11. METOCLOPRAMIDE [Concomitant]
     Dosage: 10 MG, QD

REACTIONS (6)
  - Cholelithiasis [None]
  - Gallbladder disorder [None]
  - Cholecystitis chronic [None]
  - Chest pain [None]
  - Gastrooesophageal reflux disease [None]
  - Oesophageal spasm [None]
